FAERS Safety Report 11505395 (Version 1)
Quarter: 2015Q3

REPORT INFORMATION
  Report Type: Spontaneous
  Country: US (occurrence: None)
  Receive Date: 20150911
  Receipt Date: 20150911
  Transmission Date: 20151125
  Serious: Yes (Hospitalization)
  Sender: FDA-Public Use
  Company Number: 2015HINLIT0732

PATIENT
  Age: 51 Year
  Sex: Female

DRUGS (4)
  1. VARENICLINE [Suspect]
     Active Substance: VARENICLINE
     Indication: SMOKING CESSATION THERAPY
  2. LITHIUM. [Concomitant]
     Active Substance: LITHIUM
  3. ARIPIPRAZOLE (ARIPIPRAZOLE) UNKNOWN [Suspect]
     Active Substance: ARIPIPRAZOLE
     Indication: MOOD ALTERED
  4. BUPROPRION [Concomitant]
     Active Substance: BUPROPION

REACTIONS (6)
  - Depression [None]
  - Dyskinesia [None]
  - Hypomania [None]
  - Psychotic disorder [None]
  - Suicidal ideation [None]
  - Chorea [None]
